FAERS Safety Report 7400224-5 (Version None)
Quarter: 2011Q2

REPORT INFORMATION
  Report Type: 
  Country: None (occurrence: None)
  Receive Date: 20110407
  Receipt Date: 20110329
  Transmission Date: 20111010
  Serious: Yes (Hospitalization)
  Sender: FDA-Public Use
  Company Number: US-ASTRAZENECA-2011SE17600

PATIENT
  Age: 55 Year
  Sex: Female
  Weight: 122.5 kg

DRUGS (17)
  1. VYTORIN [Concomitant]
     Dosage: 10/40 MG DAILY
  2. IBUPROFEN [Concomitant]
  3. OMEGA 3/6/9 [Concomitant]
     Dosage: 1 TWO TIMES A DAY
  4. VITAMIN D [Concomitant]
  5. SEROQUEL [Suspect]
     Indication: BIPOLAR DISORDER
     Route: 048
     Dates: start: 20050101, end: 20101001
  6. PROAIR HFA [Concomitant]
     Dosage: AS NEEDED
  7. NEURONTIN [Concomitant]
  8. LEXAPRO [Concomitant]
     Route: 048
  9. CLONAZEPAM [Concomitant]
     Dosage: 0.5 MG OID
  10. CALCIUM [Concomitant]
     Dosage: 1000 MG
  11. SEROQUEL [Suspect]
     Route: 048
     Dates: start: 20101201
  12. FERROUS SULFATE TAB [Concomitant]
  13. MELATONIN [Concomitant]
  14. ALLEGRA D 24 HOUR [Concomitant]
     Route: 048
  15. HYDROCHLOROTHIAZIDE [Concomitant]
  16. CYMBALTA [Concomitant]
  17. MAGNESIUM [Concomitant]
     Dosage: 1000 MG

REACTIONS (4)
  - EXOSTOSIS [None]
  - INTERVERTEBRAL DISC PROTRUSION [None]
  - WHITE BLOOD CELL COUNT DECREASED [None]
  - NEUTROPENIA [None]
